FAERS Safety Report 9028317 (Version 1)
Quarter: 2013Q1

REPORT INFORMATION
  Report Type: Spontaneous
  Country: US (occurrence: US)
  Receive Date: 20130124
  Receipt Date: 20130124
  Transmission Date: 20140127
  Serious: No
  Sender: FDA-Public Use
  Company Number: US-BAUSCH-BL-2012-000041

PATIENT
  Age: 65 Year
  Sex: Male

DRUGS (1)
  1. ALAWAY [Suspect]
     Indication: ALLERGY TO ANIMAL
     Dosage: 1 DROP TO BOTH EYES AS NEEDED
     Route: 047
     Dates: start: 2011

REACTIONS (2)
  - Expired drug administered [Unknown]
  - Instillation site pain [Recovered/Resolved]
